FAERS Safety Report 5529968-7 (Version None)
Quarter: 2007Q4

REPORT INFORMATION
  Report Type: 
  Country: None (occurrence: None)
  Receive Date: 20071129
  Receipt Date: 20060523
  Transmission Date: 20080405
  Serious: Yes (Disabling)
  Sender: FDA-Public Use
  Company Number: PE-ABBOTT-07P-127-0426216-00

PATIENT
  Age: 31 Year
  Sex: Male
  Weight: 62 kg

DRUGS (3)
  1. KALETRA [Suspect]
     Indication: HIV INFECTION
     Route: 048
     Dates: start: 20060209
  2. STAVUDINE [Suspect]
     Indication: DRUG USE FOR UNKNOWN INDICATION
  3. LAMIVUDINE [Concomitant]
     Indication: DRUG USE FOR UNKNOWN INDICATION

REACTIONS (3)
  - MOTOR DYSFUNCTION [None]
  - MYALGIA [None]
  - POLYNEUROPATHY [None]
